FAERS Safety Report 6500329-7 (Version None)
Quarter: 2009Q4

REPORT INFORMATION
  Report Type: 
  Country: None (occurrence: None)
  Receive Date: 20091215
  Receipt Date: 20091215
  Transmission Date: 20100525
  Serious: Yes (Hospitalization)
  Sender: FDA-Public Use
  Company Number: None

PATIENT
  Sex: Female
  Weight: 113 kg

DRUGS (13)
  1. BYETTA [Suspect]
     Indication: TYPE 2 DIABETES MELLITUS
     Dosage: 10 MCG BID 057
     Dates: start: 20091030, end: 20091123
  2. BYETTA [Suspect]
     Indication: WEIGHT DECREASED
     Dosage: 10 MCG BID 057
     Dates: start: 20091030, end: 20091123
  3. GABAPENTIN [Concomitant]
  4. LATANOPROST [Concomitant]
  5. TRAMADOL HCL [Concomitant]
  6. ACETAMINOPHEN [Concomitant]
  7. PIOGLITAZONE [Concomitant]
  8. ASPIRIN [Concomitant]
  9. DILTIAZEM [Concomitant]
  10. REPAGLINIDE [Concomitant]
  11. PRAVASTATIN [Concomitant]
  12. LISINOPRIL [Concomitant]
  13. INSULIN ASPART [Concomitant]

REACTIONS (3)
  - DIARRHOEA [None]
  - HEADACHE [None]
  - PANCREATITIS [None]
